FAERS Safety Report 9287854 (Version 1)
Quarter: 2013Q2

REPORT INFORMATION
  Report Type: Spontaneous
  Country: CA (occurrence: CA)
  Receive Date: 20130514
  Receipt Date: 20130514
  Transmission Date: 20140414
  Serious: Yes (Death)
  Sender: FDA-Public Use
  Company Number: CA-TEVA-404660USA

PATIENT
  Age: 17 Year
  Sex: Male
  Weight: 42 kg

DRUGS (4)
  1. CARBAMAZEPINE [Suspect]
     Dosage: 600 MILLIGRAM DAILY;
     Route: 048
  2. LEVETIRACETAM [Suspect]
     Dosage: 1000 MILLIGRAM DAILY;
     Route: 048
  3. ACETAMINOPHEN [Concomitant]
  4. CEFUROXIME [Concomitant]

REACTIONS (3)
  - Cardiac arrest [Fatal]
  - Hepatitis [Fatal]
  - Metabolic acidosis [Fatal]
